FAERS Safety Report 11538981 (Version 2)
Quarter: 2015Q4

REPORT INFORMATION
  Report Type: Report from Study
  Country: US (occurrence: US)
  Receive Date: 20150923
  Receipt Date: 20151112
  Transmission Date: 20160304
  Serious: No
  Sender: FDA-Public Use
  Company Number: US-009507513-1509USA002727

PATIENT

DRUGS (2)
  1. EZETIMIBE. [Suspect]
     Active Substance: EZETIMIBE
     Indication: LOW DENSITY LIPOPROTEIN
     Dosage: 10 MG/D
     Route: 048
  2. ATORVASTATIN [Suspect]
     Active Substance: ATORVASTATIN
     Indication: LOW DENSITY LIPOPROTEIN
     Dosage: 20 MG OR 40 MG/D

REACTIONS (1)
  - Accidental overdose [Unknown]
